FAERS Safety Report 12802006 (Version 1)
Quarter: 2016Q4

REPORT INFORMATION
  Report Type: Spontaneous
  Country: FR (occurrence: FR)
  Receive Date: 20161003
  Receipt Date: 20161003
  Transmission Date: 20170207
  Serious: Yes (Hospitalization)
  Sender: FDA-Public Use
  Company Number: FR-B. BRAUN MEDICAL INC.-1057904

PATIENT
  Age: 73 Year
  Sex: Male

DRUGS (9)
  1. AMOXICILLIN. [Suspect]
     Active Substance: AMOXICILLIN
     Route: 042
     Dates: start: 20160808, end: 20160810
  2. PIPERACILLIN AND TAZOBACTAM [Suspect]
     Active Substance: PIPERACILLIN SODIUM\TAZOBACTAM SODIUM
     Route: 042
     Dates: start: 20160810, end: 20160812
  3. PROLIA [Concomitant]
     Active Substance: DENOSUMAB
  4. LEVOTHYROXINE. [Concomitant]
     Active Substance: LEVOTHYROXINE
  5. CRESTOR [Concomitant]
     Active Substance: ROSUVASTATIN CALCIUM
  6. CEFTRIAXONE. [Suspect]
     Active Substance: CEFTRIAXONE
     Route: 042
     Dates: start: 20160802, end: 20160807
  7. HYDROCORTISONE. [Concomitant]
     Active Substance: HYDROCORTISONE
  8. METRONIDAZOLE. [Suspect]
     Active Substance: METRONIDAZOLE
     Route: 042
     Dates: start: 20160807, end: 20160808
  9. ROVAMYCINE [Suspect]
     Active Substance: SPIRAMYCIN
     Route: 042
     Dates: start: 20160808, end: 20160812

REACTIONS (2)
  - Acute generalised exanthematous pustulosis [None]
  - Erythema multiforme [None]
